FAERS Safety Report 12382176 (Version 1)
Quarter: 2016Q2

REPORT INFORMATION
  Report Type: Spontaneous
  Country: US (occurrence: US)
  Receive Date: 20160518
  Receipt Date: 20160518
  Transmission Date: 20160815
  Serious: No
  Sender: FDA-Public Use
  Company Number: US-BIOGEN-2016BI00220785

PATIENT
  Sex: Female

DRUGS (3)
  1. BENADRYL [Concomitant]
     Active Substance: DIPHENHYDRAMINE HYDROCHLORIDE
     Indication: BLADDER SPASM
     Route: 065
  2. STEROIDS [Concomitant]
     Active Substance: UNSPECIFIED INGREDIENT
     Route: 065
  3. TECFIDERA [Suspect]
     Active Substance: DIMETHYL FUMARATE
     Indication: MULTIPLE SCLEROSIS
     Route: 065

REACTIONS (7)
  - Dysgraphia [Unknown]
  - Oscillopsia [Not Recovered/Not Resolved]
  - Hot flush [Unknown]
  - Hypoacusis [Not Recovered/Not Resolved]
  - Bladder spasm [Unknown]
  - Memory impairment [Not Recovered/Not Resolved]
  - Cystitis [Unknown]
